FAERS Safety Report 5380166-X (Version None)
Quarter: 2007Q3

REPORT INFORMATION
  Report Type: 
  Country: None (occurrence: None)
  Receive Date: 20070706
  Receipt Date: 20070507
  Transmission Date: 20080115
  Serious: No
  Sender: FDA-Public Use
  Company Number: A0650272A

PATIENT
  Age: 63 Year
  Sex: Female

DRUGS (6)
  1. TYKERB [Suspect]
     Indication: BREAST CANCER
     Dosage: 5TAB PER DAY
     Route: 048
     Dates: start: 20070418
  2. XELODA [Concomitant]
  3. AMBIEN [Concomitant]
  4. VITAMIN D [Concomitant]
  5. ASCORBIC ACID [Concomitant]
  6. CALCIUM CHLORIDE [Concomitant]

REACTIONS (5)
  - ACNE [None]
  - DIARRHOEA [None]
  - MOUTH ULCERATION [None]
  - RASH [None]
  - TONGUE ULCERATION [None]
